FAERS Safety Report 16586640 (Version 7)
Quarter: 2019Q4

REPORT INFORMATION
  Report Type: Spontaneous
  Country: US (occurrence: US)
  Receive Date: 20190717
  Receipt Date: 20191105
  Transmission Date: 20200122
  Serious: Yes (Hospitalization)
  Sender: FDA-Public Use
  Company Number: US-JNJFOC-20190719188

PATIENT
  Age: 37 Year
  Sex: Female

DRUGS (23)
  1. FILGRASTIM [Concomitant]
     Active Substance: FILGRASTIM
     Dosage: UNK
     Route: 058
     Dates: start: 20190627
  2. IMBRUVICA [Suspect]
     Active Substance: IBRUTINIB
     Dosage: 560 MG, Q 3 WEEKS (DAYS 1-14)
     Route: 048
     Dates: start: 20190701
  3. VENETOCLAX. [Suspect]
     Active Substance: VENETOCLAX
     Dosage: 800 MG, Q 3 WEEKS (2-14 DAYS)
     Route: 048
     Dates: end: 20190822
  4. PREDNISONE. [Suspect]
     Active Substance: PREDNISONE
     Dosage: 100 MG, Q 3 WEEKS (DAYS 1-7)
     Route: 048
     Dates: start: 20190701
  5. OXYCODONE HYDROCHLORIDE. [Concomitant]
     Active Substance: OXYCODONE HYDROCHLORIDE
     Dosage: 10 MG, 1 IN 6 HR
     Route: 048
     Dates: start: 20190221
  6. IMBRUVICA [Suspect]
     Active Substance: IBRUTINIB
     Indication: DIFFUSE LARGE B-CELL LYMPHOMA
     Dosage: 560 MG, Q 3 WEEKS
     Route: 048
     Dates: start: 20190426, end: 20190829
  7. VENETOCLAX. [Suspect]
     Active Substance: VENETOCLAX
     Indication: DIFFUSE LARGE B-CELL LYMPHOMA
     Dosage: 800 MG, Q 3 WEEKS
     Route: 048
     Dates: start: 20190427, end: 20190829
  8. VENETOCLAX. [Suspect]
     Active Substance: VENETOCLAX
     Dosage: 800 MG, Q 3 WEEKS (2-14 DAYS)
     Route: 048
     Dates: start: 20190724
  9. PREDNISONE. [Suspect]
     Active Substance: PREDNISONE
     Indication: DIFFUSE LARGE B-CELL LYMPHOMA
     Dosage: 100 MG, Q 3 WEEKS
     Route: 048
     Dates: start: 20190426, end: 20190829
  10. OBINUTUZUMAB. [Suspect]
     Active Substance: OBINUTUZUMAB
     Dosage: 1000 MG, Q 3 WEEKS
     Route: 042
     Dates: end: 20190810
  11. LENALIDOMIDE [Suspect]
     Active Substance: LENALIDOMIDE
     Dosage: 15 MG, Q 3 WEEKS (DAYS 1-4)
     Route: 048
     Dates: start: 20190701
  12. SULFAMETHOXAZOLE W/TRIMETHOPRIM [Concomitant]
     Active Substance: SULFAMETHOXAZOLE\TRIMETHOPRIM
     Dosage: 800MG/160MG
     Dates: start: 20190520
  13. VENETOCLAX. [Suspect]
     Active Substance: VENETOCLAX
     Dosage: UNK
     Route: 048
     Dates: start: 20190822
  14. ENOXAPARIN [Concomitant]
     Active Substance: ENOXAPARIN
     Dosage: 40 MG, UNK
     Route: 058
     Dates: start: 20190505
  15. ONDASETRON                         /00955301/ [Concomitant]
     Active Substance: ONDANSETRON
     Dosage: 8 MG, 1IN 8HR (AS NEEDED)
     Route: 048
     Dates: start: 20190415
  16. OBINUTUZUMAB. [Suspect]
     Active Substance: OBINUTUZUMAB
     Indication: DIFFUSE LARGE B-CELL LYMPHOMA
     Dosage: 1000 MG, Q 3 WEEKS
     Route: 042
     Dates: start: 20190426, end: 20190829
  17. OBINUTUZUMAB. [Suspect]
     Active Substance: OBINUTUZUMAB
     Dosage: 1000 MG, Q 3 WEEKS (DAYS 1-2)
     Route: 042
     Dates: start: 20190719
  18. COLACE [Concomitant]
     Active Substance: DOCUSATE SODIUM
     Dosage: 100 MG, PRN
     Route: 048
     Dates: start: 20190627
  19. OXYCODONE HYDROCHLORIDE. [Concomitant]
     Active Substance: OXYCODONE HYDROCHLORIDE
     Dosage: 5 MG, 1 IN 6 HR
     Dates: start: 20190221
  20. OBINUTUZUMAB. [Suspect]
     Active Substance: OBINUTUZUMAB
     Dosage: UNK
     Route: 042
     Dates: start: 20190810
  21. LENALIDOMIDE [Suspect]
     Active Substance: LENALIDOMIDE
     Indication: DIFFUSE LARGE B-CELL LYMPHOMA
     Dosage: 15 MG, Q 3 WEEKS
     Route: 048
     Dates: start: 20190426, end: 20190829
  22. SULFAMETHOXAZOLE W/TRIMETHOPRIM [Concomitant]
     Active Substance: SULFAMETHOXAZOLE\TRIMETHOPRIM
     Dosage: 160 MG, UNK
  23. OXYCODONE HYDROCHLORIDE. [Concomitant]
     Active Substance: OXYCODONE HYDROCHLORIDE
     Dosage: 5-10 MG (1 IN 6 HR) AS NEEDED
     Route: 048
     Dates: start: 20190221

REACTIONS (2)
  - Urinary tract infection [Recovered/Resolved]
  - Disease progression [Unknown]

NARRATIVE: CASE EVENT DATE: 20190702
